FAERS Safety Report 18932349 (Version 2)
Quarter: 2021Q1

REPORT INFORMATION
  Report Type: Spontaneous
  Country: CZ (occurrence: CZ)
  Receive Date: 20210224
  Receipt Date: 20210308
  Transmission Date: 20210420
  Serious: Yes (Other)
  Sender: FDA-Public Use
  Company Number: CZ-LUPIN PHARMACEUTICALS INC.-2021-02166

PATIENT
  Age: 45 Year
  Sex: Female

DRUGS (2)
  1. FENTANYL. [Suspect]
     Active Substance: FENTANYL
     Indication: PAIN IN EXTREMITY
     Dosage: UNK
     Route: 062
  2. TRAMADOL. [Suspect]
     Active Substance: TRAMADOL
     Indication: PAIN IN EXTREMITY
     Dosage: UNK
     Route: 065

REACTIONS (3)
  - Substance dependence [Unknown]
  - Drug dependence [Unknown]
  - Product use issue [Unknown]
